FAERS Safety Report 9696291 (Version 2)
Quarter: 2013Q4

REPORT INFORMATION
  Report Type: Report from Study
  Country: US (occurrence: US)
  Receive Date: 20131119
  Receipt Date: 20131125
  Transmission Date: 20140711
  Serious: Yes (Death)
  Sender: FDA-Public Use
  Company Number: US-CELGENEUS-163-21880-13112860

PATIENT
  Age: 88 Year
  Sex: Male
  Weight: 74.91 kg

DRUGS (19)
  1. REVLIMID [Suspect]
     Indication: MANTLE CELL LYMPHOMA
     Route: 048
     Dates: start: 20131029, end: 20131108
  2. RITUXIMAB [Suspect]
     Indication: MANTLE CELL LYMPHOMA
     Route: 041
     Dates: start: 20131029, end: 20131105
  3. BORTEZOMIB [Suspect]
     Indication: MANTLE CELL LYMPHOMA
     Route: 058
     Dates: start: 20131029, end: 20131108
  4. NORMAL SALINE [Concomitant]
     Indication: DEHYDRATION
     Route: 041
     Dates: start: 20131108, end: 20131108
  5. POTASSIUM CHLORIDE [Concomitant]
     Indication: HYPOKALAEMIA
     Route: 041
     Dates: start: 20131108, end: 20131108
  6. IMODIUM AD [Concomitant]
     Indication: DIARRHOEA
     Route: 048
     Dates: start: 20131106, end: 201311
  7. ZOFRAN [Concomitant]
     Indication: PREMEDICATION
     Route: 041
     Dates: start: 20131029, end: 201311
  8. ZOFRAN [Concomitant]
     Route: 048
     Dates: start: 20131101, end: 201311
  9. DEXAMETHASONE [Concomitant]
     Indication: PREMEDICATION
     Route: 041
     Dates: start: 20131029, end: 201311
  10. DEXAMETHASONE [Concomitant]
     Route: 048
     Dates: start: 20131101, end: 201311
  11. BENADRYL [Concomitant]
     Indication: PREMEDICATION
     Route: 048
     Dates: start: 20131029, end: 201311
  12. VALTREX [Concomitant]
     Indication: HERPES ZOSTER
     Dosage: 500 MILLIGRAM
     Route: 048
     Dates: start: 20131027, end: 201311
  13. ALLOPURINOL [Concomitant]
     Indication: GOUT
     Dosage: 300 MILLIGRAM
     Route: 048
     Dates: start: 20131027, end: 201311
  14. AMLODIPINE [Concomitant]
     Indication: HYPERTENSION
     Dosage: 5 MILLIGRAM
     Route: 048
     Dates: start: 2006, end: 201311
  15. BACTRIM DS [Concomitant]
     Indication: INFECTION PROPHYLAXIS
     Dosage: 800/160MG
     Route: 048
     Dates: start: 20131027, end: 201311
  16. MULTIVITAMIN [Concomitant]
     Indication: SUPPLEMENTATION THERAPY
     Dosage: 1 TABLET
     Route: 048
     Dates: start: 1990, end: 201311
  17. TYLENOL [Concomitant]
     Indication: PREMEDICATION
     Route: 048
     Dates: start: 20131029, end: 201311
  18. COUMADIN [Concomitant]
     Indication: ATRIAL FIBRILLATION
     Dosage: 5 MILLIGRAM
     Route: 048
     Dates: start: 2006, end: 201311
  19. PROTONIX [Concomitant]
     Indication: GASTROOESOPHAGEAL REFLUX DISEASE
     Dosage: 20 MILLIGRAM
     Route: 048
     Dates: start: 2003, end: 201311

REACTIONS (1)
  - Death [Fatal]
